FAERS Safety Report 11439884 (Version 2)
Quarter: 2015Q4

REPORT INFORMATION
  Report Type: Spontaneous
  Country: US (occurrence: US)
  Receive Date: 20150901
  Receipt Date: 20151008
  Transmission Date: 20160304
  Serious: Yes (Hospitalization)
  Sender: FDA-Public Use
  Company Number: US-ASTRAZENECA-2015SE82147

PATIENT
  Age: 71 Year
  Sex: Female
  Weight: 64 kg

DRUGS (12)
  1. PULMICORT TURBUHALER [Suspect]
     Active Substance: BUDESONIDE
     Indication: PNEUMONIA
     Dosage: 2 PUFFS DAILY
     Route: 055
     Dates: start: 2012
  2. PULMICORT TURBUHALER [Suspect]
     Active Substance: BUDESONIDE
     Indication: DYSPNOEA
     Dosage: 2 PUFFS DAILY
     Route: 055
     Dates: start: 20150824
  3. CARAFATE [Concomitant]
     Active Substance: SUCRALFATE
     Indication: ABDOMINAL DISCOMFORT
  4. PULMICORT TURBUHALER [Suspect]
     Active Substance: BUDESONIDE
     Indication: DYSPNOEA
     Dosage: 2 PUFFS DAILY
     Route: 055
     Dates: start: 2012
  5. OMEPRAZOLE. [Suspect]
     Active Substance: OMEPRAZOLE
     Indication: ABDOMINAL DISCOMFORT
     Route: 048
  6. MELATONIN [Concomitant]
     Active Substance: MELATONIN
     Indication: SLEEP DISORDER
  7. PULMICORT TURBUHALER [Suspect]
     Active Substance: BUDESONIDE
     Indication: DYSPNOEA
     Dosage: 2 PUFFS DAILY
     Route: 055
     Dates: start: 20150225
  8. ACETAMENOPHEN [Concomitant]
     Indication: PAIN IN EXTREMITY
  9. PULMICORT TURBUHALER [Suspect]
     Active Substance: BUDESONIDE
     Indication: PNEUMONIA
     Dosage: 2 PUFFS DAILY
     Route: 055
     Dates: start: 20150225
  10. PULMICORT TURBUHALER [Suspect]
     Active Substance: BUDESONIDE
     Indication: PNEUMONIA
     Dosage: 2 PUFFS DAILY
     Route: 055
     Dates: start: 20150824
  11. AMLODIPINE [Concomitant]
     Active Substance: AMLODIPINE BESYLATE
     Indication: ABDOMINAL DISCOMFORT
  12. GABAPENTIN. [Suspect]
     Active Substance: GABAPENTIN
     Route: 065

REACTIONS (13)
  - Pruritus [Unknown]
  - Burning sensation [Unknown]
  - Dyspnoea [Unknown]
  - Blood pressure increased [Unknown]
  - Fall [Unknown]
  - Product quality issue [Unknown]
  - Joint dislocation [Unknown]
  - Off label use [Unknown]
  - Inflammation [Unknown]
  - Cardiac disorder [Unknown]
  - Drug dose omission [Unknown]
  - Herpes zoster [Unknown]
  - Product use issue [Unknown]

NARRATIVE: CASE EVENT DATE: 2013
